FAERS Safety Report 7596717-0 (Version None)
Quarter: 2011Q3

REPORT INFORMATION
  Report Type: 
  Country: None (occurrence: None)
  Receive Date: 20110708
  Receipt Date: 20110706
  Transmission Date: 20111222
  Serious: No
  Sender: FDA-Public Use
  Company Number: US-PFIZER INC-2011153212

PATIENT
  Sex: Female
  Weight: 81.6 kg

DRUGS (2)
  1. ZOLOFT [Suspect]
     Dosage: 50 MG, DAILY
     Route: 048
     Dates: end: 20110101
  2. ZOLOFT [Suspect]
     Indication: DEPRESSION
     Dosage: UNK
     Route: 048
     Dates: start: 19920101, end: 19950101

REACTIONS (1)
  - HYPERTENSION [None]
